FAERS Safety Report 7257000-6 (Version None)
Quarter: 2011Q1

REPORT INFORMATION
  Report Type: 
  Country: None (occurrence: None)
  Receive Date: 20110129
  Receipt Date: 20100715
  Transmission Date: 20110831
  Serious: No
  Sender: FDA-Public Use
  Company Number: US-ABBOTT-10P-163-0658443-00

PATIENT
  Sex: Female
  Weight: 72.64 kg

DRUGS (30)
  1. ROBAXIN [Concomitant]
     Indication: MUSCLE SPASMS
  2. LYRICA [Concomitant]
     Indication: FIBROMYALGIA
  3. VITAMIN B COMPLEX CAP [Concomitant]
     Indication: PRODUCT USED FOR UNKNOWN INDICATION
     Route: 060
  4. PREDNISONE [Concomitant]
     Indication: RHEUMATOID ARTHRITIS
  5. HUMIRA [Suspect]
     Indication: RHEUMATOID ARTHRITIS
     Dates: start: 20091116
  6. DIOVAN [Concomitant]
     Indication: HYPERTENSION
  7. WELCHOL [Concomitant]
     Indication: BLOOD CHOLESTEROL INCREASED
  8. VALTREX [Concomitant]
     Indication: HERPES ZOSTER
  9. CPAP MACHINE [Concomitant]
     Indication: SLEEP APNOEA SYNDROME
  10. XANAX [Concomitant]
     Indication: ANXIETY
  11. LOVAZA [Concomitant]
     Indication: PRODUCT USED FOR UNKNOWN INDICATION
  12. VITAMIN D [Concomitant]
     Indication: PRODUCT USED FOR UNKNOWN INDICATION
  13. ZETIA [Concomitant]
     Indication: BLOOD CHOLESTEROL INCREASED
  14. LAUCOVORIN CALCIUM [Concomitant]
     Indication: ALOPECIA
  15. ELABIL [Concomitant]
     Indication: PRODUCT USED FOR UNKNOWN INDICATION
  16. PROVIGIL [Concomitant]
     Indication: ASTHENIA
  17. MULTI-VITAMIN [Concomitant]
     Indication: PRODUCT USED FOR UNKNOWN INDICATION
  18. IRON [Concomitant]
     Indication: PRODUCT USED FOR UNKNOWN INDICATION
  19. MAGNESIUM OXIDE [Concomitant]
     Indication: PRODUCT USED FOR UNKNOWN INDICATION
  20. ASPIRIN [Concomitant]
     Indication: PRODUCT USED FOR UNKNOWN INDICATION
  21. CAPADEX [Concomitant]
     Indication: GASTROOESOPHAGEAL REFLUX DISEASE
  22. GLUCOSOMINE CONDROITIN [Concomitant]
     Indication: PRODUCT USED FOR UNKNOWN INDICATION
  23. LAUCOVORIN CALCIUM [Concomitant]
     Indication: STOMATITIS
  24. PROVIGIL [Concomitant]
     Indication: HYPERSOMNIA
  25. AMBIEN CR [Concomitant]
     Indication: INSOMNIA
  26. ASCORBIC ACID [Concomitant]
     Indication: PRODUCT USED FOR UNKNOWN INDICATION
  27. CALCIUM WITH VITAMIN D [Concomitant]
     Indication: PRODUCT USED FOR UNKNOWN INDICATION
  28. SPIRONOLACTONE [Concomitant]
     Indication: HYPERTENSION
  29. ATENOLOL [Concomitant]
     Indication: ARRHYTHMIA
     Dates: start: 19800101
  30. METHOTREXATE [Concomitant]
     Indication: RHEUMATOID ARTHRITIS
     Dates: start: 20090601

REACTIONS (4)
  - MOVEMENT DISORDER [None]
  - WEIGHT INCREASED [None]
  - DRUG INEFFECTIVE [None]
  - PAIN [None]
